FAERS Safety Report 7832108-2 (Version None)
Quarter: 2011Q4

REPORT INFORMATION
  Report Type: 
  Country: None (occurrence: None)
  Receive Date: 20111022
  Receipt Date: 20110712
  Transmission Date: 20120403
  Serious: No
  Sender: FDA-Public Use
  Company Number: US-BAYER-2011-060764

PATIENT
  Age: 72 Year
  Sex: Male

DRUGS (5)
  1. LISINOPRIL [Concomitant]
  2. LEVITRA [Suspect]
     Indication: ERECTILE DYSFUNCTION
     Dosage: 20 MG, QD
     Route: 048
     Dates: start: 20110704, end: 20110711
  3. GLIPIZIDE [Concomitant]
  4. METFORMIN HCL [Concomitant]
  5. ZOCOR [Concomitant]

REACTIONS (1)
  - ERECTILE DYSFUNCTION [None]
